FAERS Safety Report 6156221-3 (Version None)
Quarter: 2009Q2

REPORT INFORMATION
  Report Type: 
  Country: None (occurrence: None)
  Receive Date: 20090415
  Receipt Date: 20090408
  Transmission Date: 20091009
  Serious: No
  Sender: FDA-Public Use
  Company Number: US-B.I. PHARMACEUTICALS,INC./RIDGEFIELD-2009-BP-04402BP

PATIENT
  Sex: Female

DRUGS (7)
  1. SPIRIVA [Suspect]
     Indication: CHRONIC OBSTRUCTIVE PULMONARY DISEASE
     Dosage: 18MCG
     Route: 055
     Dates: start: 20090301, end: 20090406
  2. CALCIUM [Concomitant]
     Indication: HYPERPARATHYROIDISM
     Dates: start: 19980101
  3. CALCIUM [Concomitant]
     Indication: SURGERY
  4. SYNTHROID [Concomitant]
     Indication: HYPOTHYROIDISM
     Dates: start: 19690101
  5. ALLOPURINOL [Concomitant]
     Dates: start: 19690101
  6. CHLORTHALIDONE [Concomitant]
     Indication: FLUID RETENTION
     Dates: start: 19690101
  7. ACIPHEX [Concomitant]
     Indication: GASTROOESOPHAGEAL REFLUX DISEASE
     Dates: start: 20050101

REACTIONS (5)
  - DIZZINESS [None]
  - EYE ROLLING [None]
  - MUSCLE SPASMS [None]
  - VERTIGO [None]
  - VISION BLURRED [None]
